FAERS Safety Report 4982619-2 (Version None)
Quarter: 2006Q2

REPORT INFORMATION
  Report Type: 
  Country: None (occurrence: None)
  Receive Date: 20060419
  Receipt Date: 20060411
  Transmission Date: 20061013
  Serious: Yes (Other)
  Sender: FDA-Public Use
  Company Number: 2006037233

PATIENT
  Sex: Male

DRUGS (1)
  1. NEOSPORIN [Suspect]
     Indication: WOUND
     Dosage: TOPICAL
     Route: 061
     Dates: start: 20060310

REACTIONS (5)
  - APPLICATION SITE BURN [None]
  - CONDITION AGGRAVATED [None]
  - INSOMNIA [None]
  - PAIN [None]
  - SKIN ULCER [None]
